APPROVED DRUG PRODUCT: BUDESONIDE
Active Ingredient: BUDESONIDE
Strength: 0.5MG/2ML
Dosage Form/Route: SUSPENSION;INHALATION
Application: A078404 | Product #002 | TE Code: AN
Applicant: IMPAX LABORATORIES INC
Approved: Jul 31, 2012 | RLD: No | RS: No | Type: RX